FAERS Safety Report 16128963 (Version 2)
Quarter: 2019Q2

REPORT INFORMATION
  Report Type: Report from Study
  Country: DE (occurrence: DE)
  Receive Date: 20190328
  Receipt Date: 20190423
  Transmission Date: 20190711
  Serious: Yes (Hospitalization)
  Sender: FDA-Public Use
  Company Number: DE-TAIHO ONCOLOGY  INC-IM-2019-00170

PATIENT
  Age: 62 Year
  Sex: Female
  Weight: 77 kg

DRUGS (2)
  1. LONSURF [Suspect]
     Active Substance: TIPIRACIL HYDROCHLORIDE\TRIFLURIDINE
     Indication: RECTAL ADENOCARCINOMA
     Dosage: UNK (35 MG/M?) BID
     Route: 048
     Dates: start: 20190103, end: 20190114
  2. LONSURF [Suspect]
     Active Substance: TIPIRACIL HYDROCHLORIDE\TRIFLURIDINE
     Dosage: UNK (35 MG/M?) BID
     Route: 048
     Dates: start: 20190204, end: 20190308

REACTIONS (4)
  - Leukopenia [Unknown]
  - Haemoglobin decreased [Unknown]
  - Neutrophil count decreased [Unknown]
  - Constipation [Recovered/Resolved]

NARRATIVE: CASE EVENT DATE: 20190131
